FAERS Safety Report 5781669-6 (Version None)
Quarter: 2008Q2

REPORT INFORMATION
  Report Type: 
  Country: None (occurrence: None)
  Receive Date: 20080623
  Receipt Date: 20070626
  Transmission Date: 20081010
  Serious: No
  Sender: FDA-Public Use
  Company Number: US-ASTRAZENECA-2007UW15148

PATIENT
  Age: 66 Year
  Sex: Female
  Weight: 90.7 kg

DRUGS (8)
  1. RHINOCORT [Suspect]
     Indication: MULTIPLE ALLERGIES
     Route: 045
  2. SALINE SPRAY [Concomitant]
  3. CRESTOR [Concomitant]
  4. COLESTID [Concomitant]
  5. LORAZEPAM [Concomitant]
  6. CARDIZEM [Concomitant]
  7. DOXEPIN HCL [Concomitant]
  8. CLARINEX [Concomitant]

REACTIONS (2)
  - ABNORMAL DREAMS [None]
  - COUGH [None]
